FAERS Safety Report 23716987 (Version 1)
Quarter: 2024Q2

REPORT INFORMATION
  Report Type: Other
  Country: IN (occurrence: None)
  Receive Date: 20240408
  Receipt Date: 20240408
  Transmission Date: 20240716
  Serious: Yes (Other)
  Sender: FDA-Public Use
  Company Number: IN-ROCHE-3484065

PATIENT
  Age: 29 Year
  Sex: Female
  Weight: 53 kg

DRUGS (1)
  1. POLIVY [Suspect]
     Active Substance: POLATUZUMAB VEDOTIN-PIIQ
     Indication: Chronic lymphocytic leukaemia
     Route: 042
     Dates: start: 20231228

REACTIONS (4)
  - Loss of consciousness [Unknown]
  - Nervous system disorder [Unknown]
  - Weight decreased [Unknown]
  - Off label use [Unknown]
